FAERS Safety Report 7809546-7 (Version None)
Quarter: 2011Q4

REPORT INFORMATION
  Report Type: 
  Country: None (occurrence: None)
  Receive Date: 20111012
  Receipt Date: 20111006
  Transmission Date: 20120403
  Serious: Yes (Hospitalization, Other)
  Sender: FDA-Public Use
  Company Number: PHHY2011US02100

PATIENT
  Sex: Female

DRUGS (1)
  1. EXJADE [Suspect]
     Indication: SICKLE CELL ANAEMIA
     Dosage: 500 MG, BID
     Route: 048
     Dates: start: 20080101

REACTIONS (11)
  - FATIGUE [None]
  - HEADACHE [None]
  - NAUSEA [None]
  - FEELING ABNORMAL [None]
  - EYE IRRITATION [None]
  - HAEMOGLOBIN DECREASED [None]
  - DIZZINESS [None]
  - DIARRHOEA [None]
  - ABDOMINAL DISCOMFORT [None]
  - ABDOMINAL DISTENSION [None]
  - ABDOMINAL PAIN [None]
